FAERS Safety Report 18357090 (Version 3)
Quarter: 2020Q4

REPORT INFORMATION
  Report Type: Report from Study
  Country: None (occurrence: US)
  Receive Date: 20201007
  Receipt Date: 20201130
  Transmission Date: 20210114
  Serious: Yes (Hospitalization, Other)
  Sender: FDA-Public Use
  Company Number: US-ABBVIE-20K-163-3570655-00

PATIENT
  Age: 81 Year
  Sex: Male
  Weight: 72.64 kg

DRUGS (7)
  1. HYDROCODONE [Concomitant]
     Active Substance: HYDROCODONE
     Indication: ARTHRALGIA
     Dosage: EVERY 8
  2. AMLODIPINE BESILATE [Concomitant]
     Active Substance: AMLODIPINE BESYLATE
     Indication: HYPERTENSION
  3. TAMULOSIN [Concomitant]
     Active Substance: TAMSULOSIN
     Indication: PROSTATIC DISORDER
  4. PANTOPRAZOLE [Concomitant]
     Active Substance: PANTOPRAZOLE
     Indication: GASTROOESOPHAGEAL REFLUX DISEASE
  5. HUMIRA [Suspect]
     Active Substance: ADALIMUMAB
     Indication: RHEUMATOID ARTHRITIS
     Route: 058
     Dates: start: 2017, end: 2018
  6. HUMIRA [Suspect]
     Active Substance: ADALIMUMAB
     Route: 058
     Dates: start: 2018
  7. CENTRUM [Concomitant]
     Active Substance: VITAMINS
     Indication: SUPPLEMENTATION THERAPY

REACTIONS (13)
  - Dysphonia [Recovered/Resolved]
  - Peripheral swelling [Unknown]
  - Oesophageal mass [Recovered/Resolved]
  - Therapeutic product effect decreased [Not Recovered/Not Resolved]
  - Rheumatoid arthritis [Recovered/Resolved]
  - Feeling abnormal [Recovered/Resolved]
  - Pain in extremity [Unknown]
  - Rheumatoid arthritis [Not Recovered/Not Resolved]
  - Lesion excision [Unknown]
  - Rheumatoid arthritis [Recovered/Resolved]
  - Fatigue [Recovered/Resolved]
  - Hypoacusis [Not Recovered/Not Resolved]
  - Rheumatoid arthritis [Recovered/Resolved]

NARRATIVE: CASE EVENT DATE: 2018
